FAERS Safety Report 20161980 (Version 1)
Quarter: 2021Q4

REPORT INFORMATION
  Report Type: Spontaneous
  Country: None (occurrence: US)
  Receive Date: 20211208
  Receipt Date: 20211208
  Transmission Date: 20220303
  Serious: No
  Sender: FDA-Public Use
  Company Number: US-Breckenridge Pharmaceutical, Inc.-2122806

PATIENT
  Age: 46 Year
  Sex: Male
  Weight: 63.636 kg

DRUGS (2)
  1. AZELASTINE HYDROCHLORIDE [Suspect]
     Active Substance: AZELASTINE HYDROCHLORIDE
     Indication: Hypersensitivity
     Route: 045
  2. OXYBUTYNIN. [Concomitant]
     Active Substance: OXYBUTYNIN CHLORIDE

REACTIONS (5)
  - Epistaxis [Unknown]
  - Anxiety [Unknown]
  - Insomnia [Unknown]
  - Weight decreased [Unknown]
  - Nasal polyps [Unknown]
